FAERS Safety Report 5529088-1 (Version None)
Quarter: 2007Q4

REPORT INFORMATION
  Report Type: 
  Country: None (occurrence: None)
  Receive Date: 20071129
  Receipt Date: 20061116
  Transmission Date: 20080405
  Serious: No
  Sender: FDA-Public Use
  Company Number: A0627812A

PATIENT
  Age: 44 Year
  Sex: Female

DRUGS (3)
  1. BUPROPION HYDROCHLORIDE [Suspect]
     Indication: DEPRESSION
     Dosage: 150MG TWICE PER DAY
     Route: 048
     Dates: start: 20060801, end: 20060901
  2. ALBUTEROL [Concomitant]
  3. SINGULAIR [Concomitant]

REACTIONS (2)
  - NAUSEA [None]
  - RASH [None]
